FAERS Safety Report 10157657 (Version 1)
Quarter: 2014Q2

REPORT INFORMATION
  Report Type: Spontaneous
  Country: US (occurrence: US)
  Receive Date: 20140507
  Receipt Date: 20140507
  Transmission Date: 20141212
  Serious: No
  Sender: FDA-Public Use
  Company Number: US-009507513-1405USA002003

PATIENT
  Age: 76 Year
  Sex: Female

DRUGS (1)
  1. JANUMET XR [Suspect]
     Indication: DIABETES MELLITUS
     Dosage: 1 DF, QD
     Route: 048
     Dates: start: 20140418, end: 20140502

REACTIONS (1)
  - Chest discomfort [Not Recovered/Not Resolved]
